FAERS Safety Report 22763552 (Version 2)
Quarter: 2023Q4

REPORT INFORMATION
  Report Type: Spontaneous
  Country: DE (occurrence: DE)
  Receive Date: 20230730
  Receipt Date: 20231025
  Transmission Date: 20240109
  Serious: Yes (Other)
  Sender: FDA-Public Use
  Company Number: DE-002147023-NVSC2023DE166413

PATIENT
  Age: 58 Year
  Sex: Female

DRUGS (3)
  1. ILARIS [Suspect]
     Active Substance: CANAKINUMAB
     Indication: Still^s disease
     Dosage: 300 MG, Q4W
     Route: 065
     Dates: start: 2016
  2. ILARIS [Suspect]
     Active Substance: CANAKINUMAB
     Dosage: UNK, Q4W
     Route: 065
  3. ILARIS [Suspect]
     Active Substance: CANAKINUMAB
     Dosage: UNK
     Route: 065
     Dates: start: 20230716

REACTIONS (4)
  - Rheumatoid arthritis [Unknown]
  - Freezing phenomenon [Not Recovered/Not Resolved]
  - Arthralgia [Not Recovered/Not Resolved]
  - Product storage error [Unknown]

NARRATIVE: CASE EVENT DATE: 20230701
